FAERS Safety Report 15821480 (Version 1)
Quarter: 2019Q1

REPORT INFORMATION
  Report Type: Spontaneous
  Country: DE (occurrence: DE)
  Receive Date: 20190114
  Receipt Date: 20190114
  Transmission Date: 20190417
  Serious: Yes (Other)
  Sender: FDA-Public Use
  Company Number: DE-GLAXOSMITHKLINE-DE2018GSK236751

PATIENT
  Age: 11 Year
  Sex: Male

DRUGS (5)
  1. CLOBAZAM. [Suspect]
     Active Substance: CLOBAZAM
  2. ETHOSUXIMIDE. [Suspect]
     Active Substance: ETHOSUXIMIDE
  3. LAMOTRIGINE. [Suspect]
     Active Substance: LAMOTRIGINE
  4. TOPIRAMATE. [Suspect]
     Active Substance: TOPIRAMATE
  5. VALPROIC ACID. [Suspect]
     Active Substance: VALPROIC ACID

REACTIONS (3)
  - Drug ineffective [Unknown]
  - Suicidal ideation [Unknown]
  - Mental impairment [Unknown]
